FAERS Safety Report 7151789-2 (Version None)
Quarter: 2010Q4

REPORT INFORMATION
  Report Type: 
  Country: None (occurrence: None)
  Receive Date: 20101123
  Receipt Date: 20100901
  Transmission Date: 20110411
  Serious: No
  Sender: FDA-Public Use
  Company Number: 018136

PATIENT
  Age: 32 Year
  Sex: Female

DRUGS (6)
  1. CIMZIA [Suspect]
     Indication: RHEUMATOID ARTHRITIS
     Dosage: (400 MG 1X/MONTH SUBCUTANEOUS)
     Route: 058
     Dates: start: 20100601
  2. FLEXERIL [Concomitant]
  3. FOLIC ACID [Concomitant]
  4. LOESTRIN 1.5/30 [Concomitant]
  5. VICODIN [Concomitant]
  6. METHOTREXATE [Concomitant]

REACTIONS (4)
  - CONTUSION [None]
  - DIZZINESS [None]
  - RASH [None]
  - VISION BLURRED [None]
